FAERS Safety Report 17161554 (Version 3)
Quarter: 2020Q1

REPORT INFORMATION
  Report Type: Spontaneous
  Country: JP (occurrence: JP)
  Receive Date: 20191216
  Receipt Date: 20200103
  Transmission Date: 20200409
  Serious: Yes (Life-Threatening, Other)
  Sender: FDA-Public Use
  Company Number: JP-BEH-2019110541

PATIENT
  Age: 53 Year
  Sex: Male

DRUGS (5)
  1. FIBROGAMMIN P [Suspect]
     Active Substance: FACTOR XIII CONCENTRATE (HUMAN)
     Indication: POST PROCEDURAL FISTULA
     Dosage: 6 VIALS, QD
     Route: 065
     Dates: start: 20191206, end: 20191206
  2. FINIBAX [Concomitant]
     Active Substance: DORIPENEM MONOHYDRATE
     Dosage: UNK
     Route: 065
     Dates: start: 20191203, end: 20191206
  3. WYSTAL [Concomitant]
     Active Substance: CEFOPERAZONE SODIUM\SULBACTAM SODIUM
     Dosage: UNK
     Route: 065
     Dates: start: 20191206
  4. FIBROGAMMIN P [Suspect]
     Active Substance: FACTOR XIII CONCENTRATE (HUMAN)
     Indication: SUTURE RUPTURE
     Dosage: 6 VIALS, QD
     Route: 065
     Dates: start: 20191202, end: 20191202
  5. FIBROGAMMIN P [Suspect]
     Active Substance: FACTOR XIII CONCENTRATE (HUMAN)
     Dosage: 6 VIALS, QD
     Route: 065
     Dates: start: 20191207, end: 20191207

REACTIONS (3)
  - Pyrexia [Recovered/Resolved]
  - Cholecystitis [Recovered/Resolved]
  - Abdominal pain [Recovered/Resolved]

NARRATIVE: CASE EVENT DATE: 20191206
